FAERS Safety Report 22613503 (Version 3)
Quarter: 2023Q2

REPORT INFORMATION
  Report Type: Report from Study
  Country: US (occurrence: US)
  Receive Date: 20230619
  Receipt Date: 20230626
  Transmission Date: 20230721
  Serious: No
  Sender: FDA-Public Use
  Company Number: US-002147023-NVSC2023US135267

PATIENT
  Sex: Male
  Weight: 124.74 kg

DRUGS (4)
  1. CLOBETASOL [Suspect]
     Active Substance: CLOBETASOL
     Indication: Psoriasis
     Dosage: UNK
     Route: 065
     Dates: start: 20221227
  2. HYDROCORTISONE [Suspect]
     Active Substance: HYDROCORTISONE
     Indication: Psoriasis
     Dosage: UNK
     Route: 065
     Dates: start: 20221227
  3. KETOCONAZOLE [Suspect]
     Active Substance: KETOCONAZOLE
     Indication: Psoriasis
     Dosage: UNK
     Route: 065
     Dates: start: 20221227
  4. TALTZ [Suspect]
     Active Substance: IXEKIZUMAB
     Indication: Product used for unknown indication
     Dosage: UNK
     Route: 065
     Dates: start: 20221227

REACTIONS (13)
  - Fatigue [Unknown]
  - Arthralgia [Unknown]
  - Skin lesion [Unknown]
  - Seborrhoeic dermatitis [Unknown]
  - Sebaceous hyperplasia [Unknown]
  - Melanocytic naevus [Unknown]
  - Lentigo [Unknown]
  - Macule [Unknown]
  - Seborrhoeic keratosis [Unknown]
  - Haemangioma [Unknown]
  - Actinic keratosis [Unknown]
  - Drug ineffective [Unknown]
  - Product use in unapproved indication [Unknown]
